FAERS Safety Report 5523041-X (Version None)
Quarter: 2007Q4

REPORT INFORMATION
  Report Type: 
  Country: None (occurrence: None)
  Receive Date: 20071119
  Receipt Date: 20071119
  Transmission Date: 20080405
  Serious: Yes (Other)
  Sender: FDA-Public Use
  Company Number: None

PATIENT
  Sex: Male
  Weight: 79.3 kg

DRUGS (1)
  1. SPRYCEL [Suspect]
     Indication: GLIOBLASTOMA MULTIFORME
     Dosage: 1300 MG
     Dates: end: 20071105

REACTIONS (2)
  - DERMATITIS ACNEIFORM [None]
  - RASH PRURITIC [None]
